FAERS Safety Report 6349418-0 (Version None)
Quarter: 2009Q3

REPORT INFORMATION
  Report Type: 
  Country: None (occurrence: None)
  Receive Date: 20090911
  Receipt Date: 20090901
  Transmission Date: 20100115
  Serious: Yes (Other)
  Sender: FDA-Public Use
  Company Number: DE-PFIZER INC-2009262882

PATIENT

DRUGS (1)
  1. AZULFIDINE [Suspect]
     Dosage: 500 MG, UNK
     Route: 048
     Dates: start: 20070101

REACTIONS (1)
  - ABSCESS SWEAT GLAND [None]
